FAERS Safety Report 26146510 (Version 1)
Quarter: 2025Q4

REPORT INFORMATION
  Report Type: Spontaneous
  Country: US (occurrence: None)
  Receive Date: 20251211
  Receipt Date: 20251211
  Transmission Date: 20260118
  Serious: Yes (Hospitalization)
  Sender: FDA-CTU
  Company Number: None

PATIENT
  Age: 59 Year
  Sex: Male

DRUGS (12)
  1. TACROLIMUS [Suspect]
     Active Substance: TACROLIMUS
     Indication: Immunodeficiency
     Dosage: TAKE 1 CAPSULE (1 MG TOTAL) BY MOUTH EVERY MORNING AND 1 CAPSULE (1 MG TOTAL) EVERY EVENING.
     Route: 048
     Dates: start: 20210113
  2. TACROLIMUS [Suspect]
     Active Substance: TACROLIMUS
     Dosage: OTHER FREQUENCY : EVERY EVENING;
     Route: 048
  3. ASPIRIN LOW EC [Concomitant]
  4. CARVEDILOL [Concomitant]
     Active Substance: CARVEDILOL
  5. VITAMINS [Concomitant]
     Active Substance: VITAMINS
  6. CLONIDINE [Concomitant]
     Active Substance: CLONIDINE
  7. HYDRALAZINE [Concomitant]
     Active Substance: HYDRALAZINE HYDROCHLORIDE
  8. LEVOTHYROXINE [Concomitant]
     Active Substance: LEVOTHYROXINE
  9. MAGNESIUM [Concomitant]
     Active Substance: MAGNESIUM
  10. MYCOPHENOLATE MOFETIL [Concomitant]
     Active Substance: MYCOPHENOLATE MOFETIL
  11. OS-CAL + D3 [Concomitant]
  12. PHOSLO [Concomitant]
     Active Substance: CALCIUM ACETATE

REACTIONS (1)
  - Infection [None]

NARRATIVE: CASE EVENT DATE: 20251120
